FAERS Safety Report 6161211-0 (Version None)
Quarter: 2009Q2

REPORT INFORMATION
  Report Type: 
  Country: None (occurrence: None)
  Receive Date: 20090421
  Receipt Date: 20090415
  Transmission Date: 20091009
  Serious: Yes (Hospitalization)
  Sender: FDA-Public Use
  Company Number: CA-ASTRAZENECA-2009UW08923

PATIENT
  Age: 73 Year
  Sex: Female

DRUGS (5)
  1. CRESTOR [Suspect]
     Route: 048
     Dates: end: 20080724
  2. ATACAND HCT [Suspect]
     Route: 048
  3. CALCIUM CHANNEL BLOCKER [Concomitant]
  4. NONTHIAZIDE DIURETIC [Concomitant]
  5. ADALAT CC [Concomitant]
     Dates: start: 20030101

REACTIONS (1)
  - RHABDOMYOLYSIS [None]
